FAERS Safety Report 23755543 (Version 1)
Quarter: 2024Q2

REPORT INFORMATION
  Report Type: Spontaneous
  Country: US (occurrence: US)
  Receive Date: 20240418
  Receipt Date: 20240418
  Transmission Date: 20240716
  Serious: Yes (Other)
  Sender: FDA-Public Use
  Company Number: US-ORGANON-O2404USA001468

PATIENT
  Age: 14 Year
  Sex: Female

DRUGS (1)
  1. NEXPLANON [Suspect]
     Active Substance: ETONOGESTREL
     Dosage: 1 IMPLANT
     Route: 059

REACTIONS (8)
  - Pregnancy on contraceptive [Unknown]
  - Unintended pregnancy [Unknown]
  - Amenorrhoea [Unknown]
  - Back pain [Unknown]
  - Arthralgia [Unknown]
  - Nipple pain [Unknown]
  - Weight increased [Unknown]
  - Crying [Unknown]
